FAERS Safety Report 13402710 (Version 2)
Quarter: 2017Q2

REPORT INFORMATION
  Report Type: Spontaneous
  Country: CN (occurrence: CN)
  Receive Date: 20170404
  Receipt Date: 20170504
  Transmission Date: 20170830
  Serious: Yes (Death)
  Sender: FDA-Public Use
  Company Number: CN-ASTELLAS-2017US012846

PATIENT
  Age: 48 Year
  Sex: Male

DRUGS (1)
  1. MYCAMINE [Suspect]
     Active Substance: MICAFUNGIN SODIUM
     Indication: FUNGAL INFECTION
     Route: 042

REACTIONS (2)
  - Multiple organ dysfunction syndrome [Fatal]
  - Drug ineffective [Unknown]
